FAERS Safety Report 10517643 (Version 1)
Quarter: 2014Q4

REPORT INFORMATION
  Report Type: Spontaneous
  Country: US (occurrence: US)
  Receive Date: 20141014
  Receipt Date: 20141014
  Transmission Date: 20150528
  Serious: No
  Sender: FDA-Public Use
  Company Number: US-GLAXOSMITHKLINE-A1090678A

PATIENT
  Sex: Male

DRUGS (3)
  1. ANORO ELLIPTA [Suspect]
     Active Substance: UMECLIDINIUM BROMIDE\VILANTEROL TRIFENATATE
     Indication: CHRONIC OBSTRUCTIVE PULMONARY DISEASE
     Dates: start: 201408
  2. NO CONCURRENT MEDICATION [Concomitant]
     Active Substance: UNSPECIFIED INGREDIENT
  3. SPIRIVA [Suspect]
     Active Substance: TIOTROPIUM BROMIDE MONOHYDRATE
     Dates: start: 201408

REACTIONS (1)
  - Urticaria [Not Recovered/Not Resolved]
